FAERS Safety Report 23273535 (Version 3)
Quarter: 2024Q1

REPORT INFORMATION
  Report Type: Spontaneous
  Country: US (occurrence: US)
  Receive Date: 20231207
  Receipt Date: 20240312
  Transmission Date: 20240409
  Serious: No
  Sender: FDA-Public Use
  Company Number: US-PFIZER INC-202300429502

PATIENT
  Age: 67 Year
  Sex: Female

DRUGS (3)
  1. OXBRYTA [Suspect]
     Active Substance: VOXELOTOR
     Dosage: 1500 MG, DAILY
     Route: 048
     Dates: start: 20201110
  2. OXBRYTA [Suspect]
     Active Substance: VOXELOTOR
     Dosage: UNK
  3. OXBRYTA [Suspect]
     Active Substance: VOXELOTOR
     Dosage: 500 MG/3 TABLETS BY MOUTH ONCE DAILY
     Route: 048

REACTIONS (1)
  - Diarrhoea [Recovering/Resolving]
